FAERS Safety Report 8402977 (Version 4)
Quarter: 2012Q4

REPORT INFORMATION
  Report Type: 
  Country: US (occurrence: US)
  Receive Date: 20120213
  Receipt Date: 20121109
  Transmission Date: 20130627
  Serious: Yes (Death)
  Sender: FDA-Public Use
  Company Number: US-VIIV HEALTHCARE LIMITED-A0965216A

PATIENT
  Age: 38 Year
  Sex: Female

DRUGS (2)
  1. TRIZIVIR [Suspect]
     Indication: PRODUCT USED FOR UNKNOWN INDICATION
     Dosage: 300MG Unknown
     Route: 048
     Dates: start: 20111020, end: 20120208
  2. EPZICOM [Suspect]
     Indication: PRODUCT USED FOR UNKNOWN INDICATION
     Route: 065
     Dates: start: 20120216

REACTIONS (5)
  - End stage AIDS [Fatal]
  - Multimorbidity [Fatal]
  - Anaemia [Unknown]
  - Neutropenia [Unknown]
  - Treatment noncompliance [Unknown]
